FAERS Safety Report 16657035 (Version 1)
Quarter: 2019Q3

REPORT INFORMATION
  Report Type: Spontaneous
  Country: US (occurrence: US)
  Receive Date: 20190801
  Receipt Date: 20190801
  Transmission Date: 20191004
  Serious: Yes (Hospitalization, Other)
  Sender: FDA-Public Use
  Company Number: US-PFIZER INC-2019326269

PATIENT
  Sex: Female

DRUGS (1)
  1. XELJANZ [Suspect]
     Active Substance: TOFACITINIB CITRATE
     Indication: COLITIS ULCERATIVE
     Dosage: 20 MG, UNK
     Dates: start: 201806

REACTIONS (5)
  - Pneumonia [Unknown]
  - Drug ineffective [Unknown]
  - Accident [Unknown]
  - Dyspnoea [Unknown]
  - Multiple fractures [Unknown]
